FAERS Safety Report 18288680 (Version 1)
Quarter: 2020Q3

REPORT INFORMATION
  Report Type: Spontaneous
  Country: JP (occurrence: JP)
  Receive Date: 20200921
  Receipt Date: 20200921
  Transmission Date: 20201103
  Serious: Yes (Other)
  Sender: FDA-Public Use
  Company Number: JP-ASTRAZENECA-2020SF20661

PATIENT
  Age: 52 Year
  Sex: Female

DRUGS (1)
  1. BIPRESSO (QUETIAPINE FUMARATE) [Suspect]
     Active Substance: QUETIAPINE FUMARATE
     Indication: PRODUCT USED FOR UNKNOWN INDICATION
     Route: 048
     Dates: start: 20200910

REACTIONS (6)
  - Stertor [Unknown]
  - Coma [Unknown]
  - Productive cough [Unknown]
  - Anticonvulsant drug level increased [Unknown]
  - Intentional overdose [Unknown]
  - Vomiting [Unknown]
